FAERS Safety Report 8294603-4 (Version None)
Quarter: 2012Q2

REPORT INFORMATION
  Report Type: 
  Country: None (occurrence: None)
  Receive Date: 20120418
  Receipt Date: 20120411
  Transmission Date: 20120825
  Serious: Yes (Other)
  Sender: FDA-Public Use
  Company Number: US-JNJFOC-20120405785

PATIENT
  Age: 42 Year
  Sex: Female
  Weight: 72.58 kg

DRUGS (2)
  1. ZYRTEC [Suspect]
     Indication: MULTIPLE ALLERGIES
     Route: 048
  2. ZYRTEC [Suspect]
     Indication: URTICARIA
     Route: 048

REACTIONS (2)
  - URTICARIA [None]
  - DRUG INEFFECTIVE FOR UNAPPROVED INDICATION [None]
